FAERS Safety Report 9207160 (Version 1)
Quarter: 2013Q2

REPORT INFORMATION
  Report Type: Report from Study
  Country: US (occurrence: US)
  Receive Date: 20130403
  Receipt Date: 20130403
  Transmission Date: 20140414
  Serious: Yes (Other)
  Sender: FDA-Public Use
  Company Number: US-UCBSA-081751

PATIENT
  Age: 53 Year
  Sex: Female
  Weight: 93 kg

DRUGS (11)
  1. CIMZIA [Suspect]
     Indication: CROHN^S DISEASE
     Route: 058
     Dates: start: 20090903
  2. ALPRAZOLAM [Concomitant]
     Indication: ANXIETY
     Route: 048
  3. ATENOLOL-CHLORTHALIDONE [Concomitant]
     Indication: HYPERTENSION
     Dosage: 50-25MG ONCE DAILY
     Route: 048
  4. CALCIUM 500 + D 500 [Concomitant]
     Indication: MINERAL SUPPLEMENTATION
     Dosage: 1250-200 MG ONCE DAILY
     Route: 048
  5. COZAAR [Concomitant]
     Indication: HYPERTENSION
     Dates: start: 20090309
  6. LIPITOR [Concomitant]
     Indication: HYPERLIPIDAEMIA
     Route: 048
  7. POTASSIUM CHLORIDE [Concomitant]
     Route: 048
     Dates: start: 2008
  8. PRILOSEC [Concomitant]
     Indication: GASTRITIS PROPHYLAXIS
     Route: 048
  9. VITAMIN B12 [Concomitant]
     Indication: MINERAL SUPPLEMENTATION
     Dosage: 1000 MCG
     Route: 048
  10. VITAMIN C [Concomitant]
     Indication: VITAMIN SUPPLEMENTATION
     Route: 048
  11. ZOLPIDEM [Concomitant]
     Indication: ABNORMAL SLEEP-RELATED EVENT
     Dosage: 10 MG HS AS NECESSARY
     Route: 048
     Dates: start: 2009

REACTIONS (1)
  - Fungal infection [Recovered/Resolved]
